FAERS Safety Report 21512926 (Version 3)
Quarter: 2023Q1

REPORT INFORMATION
  Report Type: Report from Study
  Country: US (occurrence: US)
  Receive Date: 20221027
  Receipt Date: 20230119
  Transmission Date: 20230417
  Serious: Yes (Other)
  Sender: FDA-Public Use
  Company Number: US-ABBVIE-4175168

PATIENT
  Age: 62 Year
  Sex: Female

DRUGS (1)
  1. HUMIRA [Suspect]
     Active Substance: ADALIMUMAB
     Indication: Rheumatoid arthritis
     Dosage: CITRATE FREE
     Route: 058
     Dates: end: 202209

REACTIONS (6)
  - Neck surgery [Unknown]
  - Pneumonia [Unknown]
  - Procedural pain [Not Recovered/Not Resolved]
  - Central venous catheterisation [Unknown]
  - Device related infection [Unknown]
  - Pulmonary sepsis [Unknown]

NARRATIVE: CASE EVENT DATE: 20220901
